FAERS Safety Report 24321891 (Version 1)
Quarter: 2024Q3

REPORT INFORMATION
  Report Type: Spontaneous
  Country: US (occurrence: US)
  Receive Date: 20240916
  Receipt Date: 20240916
  Transmission Date: 20241017
  Serious: No
  Sender: AUROBINDO
  Company Number: US-AUROBINDO-AUR-APL-2024-007610

PATIENT
  Age: 79 Year
  Sex: Male
  Weight: 88.5 kg

DRUGS (1)
  1. CETIRIZINE HYDROCHLORIDE [Suspect]
     Active Substance: CETIRIZINE HYDROCHLORIDE
     Indication: Hypersensitivity
     Dosage: 1 DOSAGE FORM
     Route: 065
     Dates: start: 20240205, end: 20240208

REACTIONS (2)
  - Blood pressure increased [Unknown]
  - Productive cough [Unknown]
